FAERS Safety Report 6172235-1 (Version None)
Quarter: 2009Q2

REPORT INFORMATION
  Report Type: 
  Country: None (occurrence: None)
  Receive Date: 20090429
  Receipt Date: 20090424
  Transmission Date: 20091009
  Serious: Yes (Death, Hospitalization)
  Sender: FDA-Public Use
  Company Number: CN-BRISTOL-MYERS SQUIBB COMPANY-14585418

PATIENT
  Age: 24 Year
  Sex: Female

DRUGS (1)
  1. DASATINIB [Suspect]
     Indication: CHRONIC MYELOID LEUKAEMIA
     Dosage: 100 MG-28NOV08-08JAN09 140 MG-09JAN09-08APR09
     Route: 048
     Dates: start: 20090109, end: 20090408

REACTIONS (3)
  - BONE MARROW NECROSIS [None]
  - BONE PAIN [None]
  - MULTI-ORGAN FAILURE [None]
